FAERS Safety Report 10009907 (Version 1)
Quarter: 2014Q1

REPORT INFORMATION
  Report Type: Spontaneous
  Country: US (occurrence: US)
  Receive Date: 20140312
  Receipt Date: 20140312
  Transmission Date: 20141002
  Serious: No
  Sender: FDA-Public Use
  Company Number: US-INCYTE CORPORATION-2013IN000500

PATIENT
  Sex: 0

DRUGS (12)
  1. JAKAFI [Suspect]
     Indication: MYELOFIBROSIS
     Dosage: 20 MG, BID
     Dates: start: 201302
  2. TOPROL XL [Concomitant]
  3. OMEPRAZOLE [Concomitant]
  4. AVODART [Concomitant]
  5. TRILIPIX [Concomitant]
  6. ASPIRIN [Concomitant]
     Dosage: 81 MG
  7. SILVER SULFADIAZINE [Concomitant]
  8. TAMSULOSIN [Concomitant]
  9. LOVASTATIN [Concomitant]
  10. FISH OIL [Concomitant]
  11. IRON [Concomitant]
     Indication: SUPPLEMENTATION THERAPY
  12. FOLIC ACID [Concomitant]

REACTIONS (2)
  - Chest discomfort [Unknown]
  - Hypoaesthesia [Unknown]
